FAERS Safety Report 21495611 (Version 2)
Quarter: 2022Q4

REPORT INFORMATION
  Report Type: Report from Study
  Country: PH (occurrence: PH)
  Receive Date: 20221022
  Receipt Date: 20221025
  Transmission Date: 20230112
  Serious: Yes (Hospitalization)
  Sender: FDA-Public Use
  Company Number: PH-NOVARTISPH-NVSC2022PH237979

PATIENT
  Age: 79 Year
  Sex: Male

DRUGS (1)
  1. ENTRESTO [Suspect]
     Active Substance: SACUBITRIL\VALSARTAN
     Indication: Product used for unknown indication
     Dosage: 1 DOSAGE FORM, BID (50 MG)
     Route: 048

REACTIONS (2)
  - Myocardial infarction [Unknown]
  - Device malfunction [Unknown]

NARRATIVE: CASE EVENT DATE: 20220702
